FAERS Safety Report 19739513 (Version 1)
Quarter: 2021Q3

REPORT INFORMATION
  Report Type: Spontaneous
  Country: TH (occurrence: TH)
  Receive Date: 20210824
  Receipt Date: 20210824
  Transmission Date: 20211014
  Serious: Yes (Hospitalization, Other)
  Sender: FDA-Public Use
  Company Number: TH-GLAXOSMITHKLINE-TH2021GSK168952

PATIENT
  Age: 30 Year
  Sex: Male

DRUGS (4)
  1. OLANZAPINE. [Suspect]
     Active Substance: OLANZAPINE
     Indication: BIPOLAR DISORDER
     Dosage: UNK
  2. NORTRIPTYLINE [Concomitant]
     Active Substance: NORTRIPTYLINE
     Indication: BIPOLAR DISORDER
     Dosage: UNK
  3. LAMOTRIGINE. [Suspect]
     Active Substance: LAMOTRIGINE
     Indication: BIPOLAR DISORDER
     Dosage: UNK
  4. CLONAZEPAM. [Concomitant]
     Active Substance: CLONAZEPAM
     Indication: BIPOLAR DISORDER
     Dosage: UNK

REACTIONS (14)
  - Eye irritation [Recovered/Resolved]
  - Skin exfoliation [Recovering/Resolving]
  - Rash erythematous [Recovering/Resolving]
  - Mouth ulceration [Recovered/Resolved]
  - Stevens-Johnson syndrome [Recovering/Resolving]
  - Rash [Recovered/Resolved]
  - Rash maculo-papular [Recovering/Resolving]
  - Skin disorder [Recovered/Resolved]
  - Skin lesion [Recovered/Resolved]
  - Post inflammatory pigmentation change [Unknown]
  - Seborrhoeic dermatitis [Recovering/Resolving]
  - Eye discharge [Recovered/Resolved]
  - Lip haemorrhage [Recovered/Resolved]
  - Lip ulceration [Recovered/Resolved]
